FAERS Safety Report 12946751 (Version 1)
Quarter: 2016Q4

REPORT INFORMATION
  Report Type: Spontaneous
  Country: VE (occurrence: VE)
  Receive Date: 20161116
  Receipt Date: 20161116
  Transmission Date: 20170207
  Serious: Yes (Other)
  Sender: FDA-Public Use
  Company Number: PHHY2016VE154774

PATIENT
  Sex: Female

DRUGS (4)
  1. VISKALDIX [Suspect]
     Active Substance: CLOPAMIDE\PINDOLOL
     Indication: BLOOD PRESSURE ABNORMAL
     Dosage: 10/5MG, QD
     Route: 048
     Dates: start: 2006
  2. ENALAPRIL [Suspect]
     Active Substance: ENALAPRIL
     Indication: BLOOD PRESSURE ABNORMAL
     Dosage: 20 MG, QD
     Route: 065
  3. AMLODIPINE [Suspect]
     Active Substance: AMLODIPINE BESYLATE
     Indication: HYPERTENSION
     Dosage: UNK
     Route: 065
  4. METHOTREXATE. [Suspect]
     Active Substance: METHOTREXATE
     Indication: PRODUCT USED FOR UNKNOWN INDICATION
     Dosage: UNK
     Route: 065

REACTIONS (4)
  - Pain [Unknown]
  - Peripheral swelling [Unknown]
  - Alopecia [Unknown]
  - Rheumatoid arthritis [Unknown]
